FAERS Safety Report 9826305 (Version 1)
Quarter: 2014Q1

REPORT INFORMATION
  Report Type: Spontaneous
  Country: US (occurrence: US)
  Receive Date: 20140117
  Receipt Date: 20140117
  Transmission Date: 20141002
  Serious: Yes (Hospitalization)
  Sender: FDA-Public Use
  Company Number: US-BAYER-2014-006640

PATIENT
  Age: 34 Year
  Sex: Female
  Weight: 100 kg

DRUGS (6)
  1. YASMIN [Suspect]
     Indication: MENORRHAGIA
  2. YASMIN [Suspect]
     Indication: HIRSUTISM
  3. ALBUTEROL [Concomitant]
  4. MEDROL [Concomitant]
  5. NASONEX [Concomitant]
  6. AMOXICILLIN [Concomitant]

REACTIONS (1)
  - Pulmonary embolism [Recovering/Resolving]
